FAERS Safety Report 4878518-7 (Version None)
Quarter: 2006Q1

REPORT INFORMATION
  Report Type: 
  Country: None (occurrence: None)
  Receive Date: 20060110
  Receipt Date: 20060110
  Transmission Date: 20060701
  Serious: No
  Sender: FDA-Public Use
  Company Number: None

PATIENT
  Age: 53 Year
  Sex: Female
  Weight: 83.9154 kg

DRUGS (1)
  1. ZICAM ZICAM LLC/MATRIXX INITIATIVES, INC [Suspect]
     Indication: NASOPHARYNGITIS
     Dosage: ONE SQUIRT ONCE NASAL
     Route: 045
     Dates: start: 20050801, end: 20050801

REACTIONS (3)
  - ANOSMIA [None]
  - LACRIMATION INCREASED [None]
  - NASAL DISCOMFORT [None]
